FAERS Safety Report 21319914 (Version 1)
Quarter: 2022Q3

REPORT INFORMATION
  Report Type: Spontaneous
  Country: US (occurrence: US)
  Receive Date: 20220911
  Receipt Date: 20220911
  Transmission Date: 20221026
  Serious: Yes (Other)
  Sender: FDA-Public Use
  Company Number: US-SANOFI-01261437

PATIENT
  Age: 65 Year
  Sex: Male

DRUGS (5)
  1. SOLIQUA 100/33 [Suspect]
     Active Substance: INSULIN GLARGINE\LIXISENATIDE
     Indication: Diabetes mellitus
     Dosage: 56 IU, QD
  2. TRESIBA [Concomitant]
     Active Substance: INSULIN DEGLUDEC
     Dosage: UNK
  3. RYBELSUS [Concomitant]
     Active Substance: SEMAGLUTIDE
     Dosage: UNK
  4. HUMALOG [Concomitant]
     Active Substance: INSULIN LISPRO
     Dosage: 35-40 UNITS
  5. HUMALOG [Concomitant]
     Active Substance: INSULIN LISPRO
     Dosage: 40+ UNITS

REACTIONS (3)
  - Diabetes mellitus inadequate control [Unknown]
  - Condition aggravated [Unknown]
  - Drug ineffective [Unknown]
